FAERS Safety Report 4943436-2 (Version None)
Quarter: 2006Q1

REPORT INFORMATION
  Report Type: 
  Country: None (occurrence: None)
  Receive Date: 20060313
  Receipt Date: 20060313
  Transmission Date: 20060701
  Serious: Yes (Other)
  Sender: FDA-Public Use
  Company Number: None

PATIENT
  Age: 51 Year
  Sex: Female
  Weight: 76.2043 kg

DRUGS (17)
  1. CYANOCOBALAMIN [Suspect]
     Indication: PERNICIOUS ANAEMIA
     Dosage: 1000 MG GIVEN IM ON EACH OF LISTED DATES
     Route: 030
     Dates: start: 20050711
  2. CYANOCOBALAMIN [Suspect]
     Indication: PSYCHOTIC DISORDER
     Dosage: 1000 MG GIVEN IM ON EACH OF LISTED DATES
     Route: 030
     Dates: start: 20050711
  3. CYANOCOBALAMIN [Suspect]
     Indication: PERNICIOUS ANAEMIA
     Dosage: 1000 MG GIVEN IM ON EACH OF LISTED DATES
     Route: 030
     Dates: start: 20050808
  4. CYANOCOBALAMIN [Suspect]
     Indication: PSYCHOTIC DISORDER
     Dosage: 1000 MG GIVEN IM ON EACH OF LISTED DATES
     Route: 030
     Dates: start: 20050808
  5. CYANOCOBALAMIN [Suspect]
     Indication: PERNICIOUS ANAEMIA
     Dosage: 1000 MG GIVEN IM ON EACH OF LISTED DATES
     Route: 030
     Dates: start: 20050907
  6. CYANOCOBALAMIN [Suspect]
     Indication: PSYCHOTIC DISORDER
     Dosage: 1000 MG GIVEN IM ON EACH OF LISTED DATES
     Route: 030
     Dates: start: 20050907
  7. CYANOCOBALAMIN [Suspect]
     Indication: PERNICIOUS ANAEMIA
     Dosage: 1000 MG GIVEN IM ON EACH OF LISTED DATES
     Route: 030
     Dates: start: 20051003
  8. CYANOCOBALAMIN [Suspect]
     Indication: PSYCHOTIC DISORDER
     Dosage: 1000 MG GIVEN IM ON EACH OF LISTED DATES
     Route: 030
     Dates: start: 20051003
  9. CYANOCOBALAMIN [Suspect]
     Indication: PERNICIOUS ANAEMIA
     Dosage: 1000 MG GIVEN IM ON EACH OF LISTED DATES
     Route: 030
     Dates: start: 20051107
  10. CYANOCOBALAMIN [Suspect]
     Indication: PSYCHOTIC DISORDER
     Dosage: 1000 MG GIVEN IM ON EACH OF LISTED DATES
     Route: 030
     Dates: start: 20051107
  11. CYANOCOBALAMIN [Suspect]
     Indication: PERNICIOUS ANAEMIA
     Dosage: 1000 MG GIVEN IM ON EACH OF LISTED DATES
     Route: 030
     Dates: start: 20051205
  12. CYANOCOBALAMIN [Suspect]
     Indication: PSYCHOTIC DISORDER
     Dosage: 1000 MG GIVEN IM ON EACH OF LISTED DATES
     Route: 030
     Dates: start: 20051205
  13. CYANOCOBALAMIN [Suspect]
     Indication: PERNICIOUS ANAEMIA
     Dosage: 1000 MG GIVEN IM ON EACH OF LISTED DATES
     Route: 030
     Dates: start: 20060104
  14. CYANOCOBALAMIN [Suspect]
     Indication: PSYCHOTIC DISORDER
     Dosage: 1000 MG GIVEN IM ON EACH OF LISTED DATES
     Route: 030
     Dates: start: 20060104
  15. CYANOCOBALAMIN [Suspect]
     Indication: PERNICIOUS ANAEMIA
     Dosage: 1000 MG GIVEN IM ON EACH OF LISTED DATES
     Route: 030
     Dates: start: 20060203
  16. CYANOCOBALAMIN [Suspect]
     Indication: PSYCHOTIC DISORDER
     Dosage: 1000 MG GIVEN IM ON EACH OF LISTED DATES
     Route: 030
     Dates: start: 20060203
  17. ZYREXA [Concomitant]

REACTIONS (3)
  - PERNICIOUS ANAEMIA [None]
  - PSYCHOTIC DISORDER [None]
  - VITAMIN B12 DECREASED [None]
